FAERS Safety Report 4505443-3 (Version None)
Quarter: 2004Q4

REPORT INFORMATION
  Report Type: 
  Country: None (occurrence: None)
  Receive Date: 20041116
  Receipt Date: 20041103
  Transmission Date: 20050328
  Serious: Yes (Death, Hospitalization, Other)
  Sender: FDA-Public Use
  Company Number: 2003IM001136

PATIENT
  Age: 77 Year
  Sex: Female
  Weight: 53 kg

DRUGS (13)
  1. NTERFERON GAMMA 1B (INTERFERN GAMMA-1B) [Suspect]
     Indication: OVARIAN CANCER
     Dosage: 100 UG;TIW;SUBCUTANEOUSS
     Route: 058
     Dates: start: 20030815, end: 20031022
  2. CARBOPLATIN [Suspect]
     Indication: OVARIAN CANCER
     Dosage: 332 MG;Q3W;INTRAVENOUS
     Route: 042
     Dates: start: 20030815, end: 20031017
  3. PACLITAXEL [Suspect]
     Indication: OVARIAN CANCER
     Dosage: 278 MG;Q3W;INTRAVENOUS
     Route: 042
     Dates: start: 20030815, end: 20031017
  4. COUMADIN [Concomitant]
  5. ATENOLOL [Concomitant]
  6. MAGNESIUM-ROUGIER [Concomitant]
  7. ATIVAN [Concomitant]
  8. DECADRON [Concomitant]
  9. PEPCID [Concomitant]
  10. BENADRYL [Concomitant]
  11. KYTRIL [Concomitant]
  12. TYLENOL (CAPLET) [Concomitant]
  13. LOZIDE [Concomitant]

REACTIONS (15)
  - ABDOMINAL DISTENSION [None]
  - AGITATION [None]
  - ANAEMIA [None]
  - ASTHENIA [None]
  - AZOTAEMIA [None]
  - CLOSTRIDIUM COLITIS [None]
  - CONFUSIONAL STATE [None]
  - DEHYDRATION [None]
  - DYSPNOEA [None]
  - FEBRILE NEUTROPENIA [None]
  - GENERAL PHYSICAL HEALTH DETERIORATION [None]
  - RENAL FAILURE ACUTE [None]
  - SEPTIC SHOCK [None]
  - THERAPEUTIC AGENT TOXICITY [None]
  - UROSEPSIS [None]
